FAERS Safety Report 5323490-9 (Version None)
Quarter: 2007Q2

REPORT INFORMATION
  Report Type: 
  Country: None (occurrence: None)
  Receive Date: 20070514
  Receipt Date: 20070427
  Transmission Date: 20071010
  Serious: Yes (Hospitalization)
  Sender: FDA-Public Use
  Company Number: FR-NOVOPROD-262921

PATIENT
  Age: 74 Year
  Sex: Female

DRUGS (7)
  1. NOVONORM [Suspect]
     Indication: DIABETES MELLITUS NON-INSULIN-DEPENDENT
     Dosage: 2 MG, BID
     Route: 048
     Dates: start: 20070305, end: 20070313
  2. AMLOR [Concomitant]
  3. SERETIDE                           /01420901/ [Concomitant]
  4. VENTOLINE                          /00139501/ [Concomitant]
  5. SPIRIVA [Concomitant]
  6. CELESTENE                          /00008501/ [Concomitant]
     Dates: start: 20070303, end: 20070301
  7. CORTANCYL [Concomitant]
     Dates: start: 20070303, end: 20070301

REACTIONS (3)
  - NAUSEA [None]
  - PYREXIA [None]
  - RASH [None]
